FAERS Safety Report 9159372 (Version 2)
Quarter: 2013Q2

REPORT INFORMATION
  Report Type: Spontaneous
  Country: US (occurrence: US)
  Receive Date: 20130313
  Receipt Date: 20130408
  Transmission Date: 20140414
  Serious: No
  Sender: FDA-Public Use
  Company Number: US-JNJFOC-20130302663

PATIENT
  Sex: Male
  Weight: 99.79 kg

DRUGS (4)
  1. FENTANYL [Suspect]
     Indication: PAIN
     Route: 062
     Dates: start: 2012
  2. FENTANYL [Suspect]
     Indication: PAIN
     Route: 062
     Dates: start: 2012
  3. FENTANYL [Suspect]
     Indication: PAIN
     Route: 062
     Dates: start: 201209
  4. FENTANYL [Suspect]
     Indication: PAIN
     Route: 062
     Dates: start: 2012, end: 2012

REACTIONS (2)
  - Wrong technique in drug usage process [Recovered/Resolved]
  - Product quality issue [Unknown]
